FAERS Safety Report 7607941-2 (Version None)
Quarter: 2011Q3

REPORT INFORMATION
  Report Type: 
  Country: None (occurrence: None)
  Receive Date: 20110714
  Receipt Date: 20110127
  Transmission Date: 20111222
  Serious: Yes (Death, Hospitalization, Other)
  Sender: FDA-Public Use
  Company Number: US-BAYER-200938356NA

PATIENT
  Sex: Female
  Weight: 72.562 kg

DRUGS (42)
  1. TRASYLOL [Suspect]
     Dosage: 50CC/HR
     Route: 042
     Dates: start: 20070425, end: 20070425
  2. LASIX [Concomitant]
     Dosage: 40 MG, QD
     Route: 048
  3. NITROGLYCERIN [Concomitant]
     Dosage: 0.2MG/ HOUR TO BE ON 12 HOURS DAY
     Route: 061
  4. MANNITOL [Concomitant]
     Dosage: 100 ML, UNK
     Route: 042
     Dates: start: 20070425, end: 20070425
  5. ALBUMIN (HUMAN) [Concomitant]
     Dosage: 200
     Route: 042
     Dates: start: 20070425, end: 20070425
  6. DOBUTREX [Concomitant]
     Dosage: UNK
     Route: 042
     Dates: start: 20070425
  7. RANITIDINE [Concomitant]
     Dosage: 50 MG, UNK
     Route: 042
     Dates: start: 20070425, end: 20070425
  8. ZESTRIL [Concomitant]
     Dosage: 20 MG, BID
     Route: 048
  9. LISINOPRIL [Concomitant]
     Dosage: 20 MG, QD
     Route: 048
  10. FOSAMAX [Concomitant]
     Dosage: 70MG, WEEKLY
     Route: 048
  11. CARDIOPLEGIA [Concomitant]
     Dosage: 2200 PUMP
     Dates: start: 20070425, end: 20070425
  12. OXILAN-300 [Concomitant]
  13. TRASYLOL [Suspect]
     Dosage: PUMP PRIME :200 ML
     Route: 042
     Dates: start: 20070425, end: 20070425
  14. HEPARIN [Concomitant]
     Dosage: 450 ML, UNK
     Route: 042
     Dates: start: 20070425, end: 20070425
  15. HEPARIN [Concomitant]
     Dosage: UNK
     Route: 042
     Dates: start: 20070425
  16. PRIMAXIN [Concomitant]
     Dosage: UNK
     Dates: start: 20070428
  17. ISOFLURANE [Concomitant]
     Dosage: UNK
     Dates: start: 20070425, end: 20070425
  18. TRASYLOL [Suspect]
     Indication: CORONARY ARTERY BYPASS
     Dosage: 1 BOTTLE BOLUS
     Route: 042
     Dates: start: 20070425, end: 20070425
  19. LEVOPHED [Concomitant]
     Route: 042
  20. EPINEPHRINE [Concomitant]
     Dosage: UNK
     Route: 042
     Dates: start: 20070425
  21. LIDOCAINE [Concomitant]
     Dosage: 100 MG, UNK
     Dates: start: 20070425, end: 20070425
  22. ZYVOX [Concomitant]
  23. TRASYLOL [Suspect]
     Indication: INTRA-AORTIC BALLOON PLACEMENT
     Dosage: 25CC/HR INFUSION
     Route: 042
     Dates: start: 20070425, end: 20070425
  24. PLAVIX [Concomitant]
     Dosage: 75 MG, QD
     Route: 048
  25. RED BLOOD CELLS [Concomitant]
     Dosage: 4 UNITS
  26. PRILOSEC [Concomitant]
     Dosage: 20 MG, QD
     Route: 048
  27. ACETYLSALICYLIC ACID SRT [Concomitant]
     Dosage: 325 MG, QD
     Route: 048
  28. PRIMACOR [Concomitant]
     Dosage: UNK
     Dates: start: 20070427
  29. LEVAQUIN [Concomitant]
     Dosage: UNK
     Dates: start: 20070428
  30. VASOPRESSIN [Concomitant]
     Dosage: DRIP
     Route: 042
     Dates: start: 20070428
  31. THIOPENTAL SODIUM [Concomitant]
     Dosage: UNK
     Route: 042
     Dates: start: 20070425, end: 20070425
  32. PROCARDIA XL [Concomitant]
     Dosage: 30 MG, QD
     Route: 048
  33. NITROGLYCERIN [Concomitant]
     Dosage: TITRATED
     Route: 042
     Dates: start: 20070425
  34. FENTANYL [Concomitant]
     Dosage: UNK
     Route: 042
     Dates: start: 20070425, end: 20070425
  35. PROTAMINE SULFATE [Concomitant]
     Dosage: 120 MG, UNK
     Route: 042
     Dates: start: 20070425, end: 20070425
  36. VERSED [Concomitant]
     Dosage: 4 MG, UNK
     Route: 042
     Dates: start: 20070425, end: 20070425
  37. BENADRYL [Concomitant]
     Dosage: 25 MG, UNK
     Route: 042
     Dates: start: 20070425, end: 20070425
  38. CALCIUM CHLORIDE [Concomitant]
     Dosage: 0.5 G, UNK
     Dates: start: 20070425, end: 20070425
  39. KEFZOL [Concomitant]
     Dosage: 2 G, UNK
     Route: 042
     Dates: start: 20070425, end: 20070425
  40. PHENYLEPHRINE HCL [Concomitant]
     Dosage: TITRATED
     Route: 042
  41. ESMOLOL [Concomitant]
     Dosage: 20 MG, UNK
     Route: 042
     Dates: start: 20070425, end: 20070425
  42. BUMEX [Concomitant]

REACTIONS (11)
  - RENAL FAILURE [None]
  - PAIN [None]
  - ANXIETY [None]
  - DEATH [None]
  - MYOCARDIAL INFARCTION [None]
  - INJURY [None]
  - FEAR [None]
  - CARDIOGENIC SHOCK [None]
  - UNEVALUABLE EVENT [None]
  - DEPRESSION [None]
  - ANHEDONIA [None]
